FAERS Safety Report 12402021 (Version 21)
Quarter: 2020Q1

REPORT INFORMATION
  Report Type: Spontaneous
  Country: US (occurrence: US)
  Receive Date: 20160525
  Receipt Date: 20200108
  Transmission Date: 20200409
  Serious: Yes (Death, Hospitalization, Other)
  Sender: FDA-Public Use
  Company Number: US-PFIZER INC-2016273266

PATIENT
  Age: 69 Year
  Sex: Female
  Weight: 63.5 kg

DRUGS (4)
  1. ELIQUIS [Concomitant]
     Active Substance: APIXABAN
     Indication: ANTICOAGULANT THERAPY
     Dosage: 5 MG, 2X/DAY
     Route: 048
  2. XELJANZ [Suspect]
     Active Substance: TOFACITINIB CITRATE
     Indication: RHEUMATOID ARTHRITIS
     Dosage: 5 MG, 2X/DAY
     Route: 048
  3. XELJANZ [Suspect]
     Active Substance: TOFACITINIB CITRATE
     Indication: ALOPECIA
  4. BABY ASPIRIN [Concomitant]
     Active Substance: ASPIRIN
     Indication: ANTICOAGULANT THERAPY
     Dosage: 81 MG, 1X/DAY
     Route: 048

REACTIONS (20)
  - Cataract [Not Recovered/Not Resolved]
  - Drug ineffective for unapproved indication [Unknown]
  - Death [Fatal]
  - Arthropathy [Not Recovered/Not Resolved]
  - Rheumatoid nodule [Not Recovered/Not Resolved]
  - Scab [Not Recovered/Not Resolved]
  - Localised infection [Recovered/Resolved with Sequelae]
  - Cerebrovascular accident [Recovered/Resolved]
  - Rib fracture [Unknown]
  - Pneumonia [Unknown]
  - Urinary tract infection [Not Recovered/Not Resolved]
  - Gastrointestinal haemorrhage [Not Recovered/Not Resolved]
  - Fall [Unknown]
  - Back injury [Unknown]
  - Spinal fracture [Unknown]
  - Skin laceration [Unknown]
  - Malaise [Unknown]
  - Balance disorder [Unknown]
  - Musculoskeletal pain [Not Recovered/Not Resolved]
  - Condition aggravated [Not Recovered/Not Resolved]

NARRATIVE: CASE EVENT DATE: 2015
